FAERS Safety Report 24284418 (Version 1)
Quarter: 2024Q3

REPORT INFORMATION
  Report Type: Spontaneous
  Country: BR (occurrence: BR)
  Receive Date: 20240905
  Receipt Date: 20240905
  Transmission Date: 20241016
  Serious: No
  Sender: ALKEM
  Company Number: BR-ALKEM LABORATORIES LIMITED-BR-ALKEM-2024-14946

PATIENT
  Age: 9 Year
  Sex: Male

DRUGS (10)
  1. ITRACONAZOLE [Suspect]
     Active Substance: ITRACONAZOLE
     Indication: Paracoccidioides infection
     Dosage: 4.5 MILLIGRAM/KILOGRAM, QD
     Route: 065
  2. ITRACONAZOLE [Suspect]
     Active Substance: ITRACONAZOLE
     Indication: Pneumonia
  3. VANCOMYCIN [Suspect]
     Active Substance: VANCOMYCIN
     Indication: Paracoccidioides infection
     Dosage: 60 MILLIGRAM/KILOGRAM, QD
     Route: 065
  4. VANCOMYCIN [Suspect]
     Active Substance: VANCOMYCIN
     Indication: Pneumonia
  5. CIPROFLOXACIN [Suspect]
     Active Substance: CIPROFLOXACIN
     Indication: Paracoccidioides infection
     Dosage: 30 MILLIGRAM/KILOGRAM, QD
     Route: 065
  6. CIPROFLOXACIN [Suspect]
     Active Substance: CIPROFLOXACIN
     Indication: Pneumonia
  7. AMPHOTERICIN B DEOXYCHOLATE [Suspect]
     Active Substance: AMPHOTERICIN B DEOXYCHOLATE
     Indication: Paracoccidioides infection
     Dosage: 1 MILLIGRAM/KILOGRAM, QD
     Route: 065
  8. AMPHOTERICIN B DEOXYCHOLATE [Suspect]
     Active Substance: AMPHOTERICIN B DEOXYCHOLATE
     Indication: Pneumonia
  9. MEROPENEM [Suspect]
     Active Substance: MEROPENEM
     Indication: Paracoccidioides infection
     Dosage: 120 MILLIGRAM/KILOGRAM, QD
     Route: 065
  10. MEROPENEM [Suspect]
     Active Substance: MEROPENEM
     Indication: Pneumonia

REACTIONS (1)
  - Therapy non-responder [Unknown]
